FAERS Safety Report 11682012 (Version 1)
Quarter: 2015Q4

REPORT INFORMATION
  Report Type: Spontaneous
  Country: US (occurrence: None)
  Receive Date: 20151028
  Receipt Date: 20151028
  Transmission Date: 20160304
  Serious: Yes (Disabling, Other)
  Sender: FDA-Public Use
  Company Number: None

PATIENT
  Age: 26 Year
  Sex: Male
  Weight: 77.11 kg

DRUGS (6)
  1. TRAMADOL. [Suspect]
     Active Substance: TRAMADOL
  2. AMITRIPTYLINE [Concomitant]
     Active Substance: AMITRIPTYLINE
  3. LIDOCAINE. [Suspect]
     Active Substance: LIDOCAINE
  4. MULTIVITAMIN [Concomitant]
     Active Substance: VITAMINS
  5. TESTOPEL [Suspect]
     Active Substance: TESTOSTERONE
     Indication: HYPOGONADISM
     Route: 058
  6. SYMBICORT [Suspect]
     Active Substance: BUDESONIDE\FORMOTEROL FUMARATE DIHYDRATE

REACTIONS (6)
  - Type IV hypersensitivity reaction [None]
  - Hyperaesthesia [None]
  - Implant site pain [None]
  - Implant site inflammation [None]
  - Excessive granulation tissue [None]
  - Impaired work ability [None]

NARRATIVE: CASE EVENT DATE: 20131211
